FAERS Safety Report 13419592 (Version 4)
Quarter: 2017Q3

REPORT INFORMATION
  Report Type: Report from Study
  Country: US (occurrence: US)
  Receive Date: 20170407
  Receipt Date: 20170811
  Transmission Date: 20171127
  Serious: Yes (Other)
  Sender: FDA-Public Use
  Company Number: US-AMGEN-USASL2017051051

PATIENT
  Age: 56 Year
  Sex: Female

DRUGS (7)
  1. NEURONTIN [Suspect]
     Active Substance: GABAPENTIN
     Indication: PRODUCT USED FOR UNKNOWN INDICATION
     Dosage: UNK
     Route: 065
     Dates: start: 2017
  2. METHOTREXATE. [Concomitant]
     Active Substance: METHOTREXATE
     Dosage: UNK
  3. ENBREL [Suspect]
     Active Substance: ETANERCEPT
     Indication: RHEUMATOID ARTHRITIS
     Dosage: 50 MG, QWK
     Route: 065
  4. ENBREL [Suspect]
     Active Substance: ETANERCEPT
     Dosage: 50 MG, QWK
     Route: 065
     Dates: start: 2017
  5. METHOTREXATE. [Concomitant]
     Active Substance: METHOTREXATE
     Dosage: UNK UNK, QWK
     Route: 048
  6. PREDNISONE. [Concomitant]
     Active Substance: PREDNISONE
     Dosage: UNK
  7. AMITRIPTYLINE [Concomitant]
     Active Substance: AMITRIPTYLINE
     Dosage: UNK

REACTIONS (10)
  - Infection [Unknown]
  - Injection site vesicles [Unknown]
  - Pain in extremity [Not Recovered/Not Resolved]
  - Stress [Unknown]
  - Back pain [Not Recovered/Not Resolved]
  - Injection site rash [Recovered/Resolved]
  - Rheumatoid arthritis [Not Recovered/Not Resolved]
  - Drug abuse [Unknown]
  - Post-traumatic stress disorder [Unknown]
  - Herpes zoster [Not Recovered/Not Resolved]

NARRATIVE: CASE EVENT DATE: 2017
